FAERS Safety Report 9689136 (Version 1)
Quarter: 2013Q4

REPORT INFORMATION
  Report Type: Spontaneous
  Country: US (occurrence: None)
  Receive Date: 20131113
  Receipt Date: 20131113
  Transmission Date: 20140711
  Serious: Yes (Other)
  Sender: FDA-Public Use
  Company Number: A1048202A

PATIENT
  Age: 55 Year
  Sex: Female

DRUGS (1)
  1. SODIUM FLUORIDE TOOTHPASTE (SODIUM FLUORIDE) [Suspect]
     Dosage: DENTAL
     Dates: start: 20131103

REACTIONS (1)
  - Convulsion [None]
